FAERS Safety Report 10382517 (Version 1)
Quarter: 2014Q3

REPORT INFORMATION
  Report Type: Spontaneous
  Country: DK (occurrence: CA)
  Receive Date: 20140813
  Receipt Date: 20140813
  Transmission Date: 20150326
  Serious: Yes (Other)
  Sender: FDA-Public Use
  Company Number: CA-FRI-1000069789

PATIENT
  Sex: Female

DRUGS (2)
  1. EFFEXOR XR [Suspect]
     Active Substance: VENLAFAXINE HYDROCHLORIDE
     Indication: ANXIETY
     Dosage: 37.5 MG
     Route: 048
     Dates: start: 20140718, end: 20140718
  2. ESCITALOPRAM [Suspect]
     Active Substance: ESCITALOPRAM OXALATE
     Dosage: 5 MG
     Route: 048
     Dates: start: 20140720, end: 20140722

REACTIONS (11)
  - Skin burning sensation [Recovering/Resolving]
  - Vomiting [Recovering/Resolving]
  - Tremor [Recovering/Resolving]
  - Serotonin syndrome [Recovering/Resolving]
  - Nausea [Recovering/Resolving]
  - Hallucination [Recovering/Resolving]
  - Muscle tightness [Recovering/Resolving]
  - Diarrhoea [Recovering/Resolving]
  - Muscle spasms [Recovering/Resolving]
  - Muscle twitching [Recovering/Resolving]
  - Restlessness [Recovering/Resolving]

NARRATIVE: CASE EVENT DATE: 20140720
